FAERS Safety Report 5754727-X (Version None)
Quarter: 2008Q2

REPORT INFORMATION
  Report Type: 
  Country: None (occurrence: None)
  Receive Date: 20080527
  Receipt Date: 20080507
  Transmission Date: 20081010
  Serious: Yes (Hospitalization)
  Sender: FDA-Public Use
  Company Number: 2008AL003931

PATIENT
  Age: 42 Year
  Sex: Female

DRUGS (1)
  1. DIGOXIN [Suspect]
     Dosage: 0.125MG DAILY PO
     Route: 048

REACTIONS (5)
  - CHEST PAIN [None]
  - CHILLS [None]
  - HYPOTENSION [None]
  - LETHARGY [None]
  - PYREXIA [None]
